FAERS Safety Report 21165669 (Version 1)
Quarter: 2022Q3

REPORT INFORMATION
  Report Type: Spontaneous
  Country: US (occurrence: None)
  Receive Date: 20220802
  Receipt Date: 20220802
  Transmission Date: 20221027
  Serious: Yes (Other)
  Sender: FDA-Public Use
  Company Number: None

PATIENT
  Age: 12 Month
  Sex: Female
  Weight: 10.44 kg

DRUGS (1)
  1. BLINATUMOMAB [Suspect]
     Active Substance: BLINATUMOMAB
     Dosage: FREQUENCY : DAILY;?
     Route: 041
     Dates: start: 20220714

REACTIONS (5)
  - Crying [None]
  - Strabismus [None]
  - Facial paralysis [None]
  - Facial paresis [None]
  - Neurotoxicity [None]

NARRATIVE: CASE EVENT DATE: 20220731
